FAERS Safety Report 19846150 (Version 1)
Quarter: 2021Q3

REPORT INFORMATION
  Report Type: Spontaneous
  Country: US (occurrence: US)
  Receive Date: 20210917
  Receipt Date: 20210917
  Transmission Date: 20211014
  Serious: No
  Sender: FDA-Public Use
  Company Number: None

PATIENT
  Age: 50 Year
  Sex: Female
  Weight: 111 kg

DRUGS (2)
  1. FULVESTRANT. [Suspect]
     Active Substance: FULVESTRANT
     Indication: BREAST CANCER
     Dosage: ?          OTHER FREQUENCY:MONTHLY;?
     Route: 030
     Dates: start: 20210810
  2. LEUPROLIDE ACETATE 7.5 MG [Concomitant]
     Dates: start: 20210910, end: 20210910

REACTIONS (5)
  - Throat tightness [None]
  - Cough [None]
  - Chest discomfort [None]
  - Product substitution issue [None]
  - Flushing [None]

NARRATIVE: CASE EVENT DATE: 20210810
